FAERS Safety Report 7088228-6 (Version None)
Quarter: 2010Q4

REPORT INFORMATION
  Report Type: 
  Country: None (occurrence: None)
  Receive Date: 20101108
  Receipt Date: 20100601
  Transmission Date: 20110411
  Serious: Yes (Hospitalization, Other)
  Sender: FDA-Public Use
  Company Number: US-BAYER-201025673NA

PATIENT
  Age: 29 Year
  Sex: Female
  Weight: 62 kg

DRUGS (6)
  1. YASMIN [Suspect]
     Indication: CONTRACEPTION
     Route: 048
     Dates: start: 20071101, end: 20080301
  2. TYLENOL [Concomitant]
     Indication: PAIN
     Dates: start: 20080201, end: 20080428
  3. PEPTOBISMOL [Concomitant]
     Indication: DIARRHOEA
     Dates: start: 20080201, end: 20080420
  4. LORDANE XR LIQUID [Concomitant]
     Dates: start: 20080115
  5. DIPROLENE [Concomitant]
     Dosage: .05 %
     Dates: start: 20080115
  6. LORATADINE [Concomitant]

REACTIONS (6)
  - ABDOMINAL PAIN UPPER [None]
  - BILIARY COLIC [None]
  - CHOLELITHIASIS [None]
  - DIARRHOEA [None]
  - GALLBLADDER DISORDER [None]
  - HAEMATOCHEZIA [None]
